FAERS Safety Report 19933793 (Version 4)
Quarter: 2021Q4

REPORT INFORMATION
  Report Type: Spontaneous
  Country: AT (occurrence: AT)
  Receive Date: 20211008
  Receipt Date: 20211201
  Transmission Date: 20220303
  Serious: Yes (Death, Hospitalization, Other)
  Sender: FDA-Public Use
  Company Number: AT-TAKEDA-2021TJP041240

PATIENT
  Age: 77 Year
  Sex: Male
  Weight: 76 kg

DRUGS (7)
  1. BICALUTAMIDE [Suspect]
     Active Substance: BICALUTAMIDE
     Indication: Prostate cancer stage III
     Dosage: UNK
     Route: 065
  2. METRONIDAZOLE [Suspect]
     Active Substance: METRONIDAZOLE
     Indication: Diarrhoea
     Dosage: UNK
     Route: 065
  3. LEUPROLIDE ACETATE [Suspect]
     Active Substance: LEUPROLIDE ACETATE
     Indication: Prostate cancer stage III
     Dosage: UNK, Q3MONTHS
     Route: 030
  4. OPIUM [Suspect]
     Active Substance: OPIUM
     Indication: Diarrhoea
     Dosage: UNK
  5. DENOSUMAB [Suspect]
     Active Substance: DENOSUMAB
     Indication: Prostate cancer stage III
     Dosage: UNK, MONTHLY
     Route: 058
  6. DENOSUMAB [Suspect]
     Active Substance: DENOSUMAB
     Dosage: UNK
     Route: 058
  7. CIPROFLOXACIN [Concomitant]
     Active Substance: CIPROFLOXACIN
     Indication: Diarrhoea
     Dosage: UNK

REACTIONS (9)
  - Death [Fatal]
  - Atrial fibrillation [Fatal]
  - Diarrhoea [Fatal]
  - Vipoma [Fatal]
  - Device related sepsis [Fatal]
  - Gastrooesophageal reflux disease [Fatal]
  - Drug ineffective [Fatal]
  - Off label use [Fatal]
  - Product use in unapproved indication [Unknown]
